FAERS Safety Report 25763896 (Version 1)
Quarter: 2025Q3

REPORT INFORMATION
  Report Type: Spontaneous
  Country: US (occurrence: US)
  Receive Date: 20250905
  Receipt Date: 20250905
  Transmission Date: 20251021
  Serious: No
  Sender: DOMPE FARMACEUTICI
  Company Number: US-FARMAPROD-202411-3851

PATIENT
  Sex: Female

DRUGS (11)
  1. OXERVATE [Suspect]
     Active Substance: CENEGERMIN-BKBJ
     Indication: Neurotrophic keratopathy
     Route: 047
     Dates: start: 20241008
  2. VITAMIN B COMPLEX [Concomitant]
     Active Substance: CYANOCOBALAMIN\DEXPANTHENOL\NIACINAMIDE\PYRIDOXINE HYDROCHLORIDE\RIBOFLAVIN 5^-PHOSPHATE SODIUM\THIA
  3. HYDROXYZINE HYDROCHLORIDE [Concomitant]
     Active Substance: HYDROXYZINE HYDROCHLORIDE
  4. BUSPIRONE HCL [Concomitant]
     Active Substance: BUSPIRONE HYDROCHLORIDE
  5. IBUPROFEN [Concomitant]
     Active Substance: IBUPROFEN
  6. LAMOTRIGINE [Concomitant]
     Active Substance: LAMOTRIGINE
  7. XANAX [Concomitant]
     Active Substance: ALPRAZOLAM
  8. VITAMIN D3 [Concomitant]
     Active Substance: CHOLECALCIFEROL
  9. DESVENLAFAXINE ER [Concomitant]
     Active Substance: DESVENLAFAXINE SUCCINATE
  10. GABAPENTIN [Concomitant]
     Active Substance: GABAPENTIN
  11. XIIDRA [Concomitant]
     Active Substance: LIFITEGRAST

REACTIONS (2)
  - Product dose omission issue [Unknown]
  - Gastroenteritis [Unknown]
